FAERS Safety Report 5363720-0 (Version None)
Quarter: 2007Q2

REPORT INFORMATION
  Report Type: 
  Country: None (occurrence: None)
  Receive Date: 20070620
  Receipt Date: 20070611
  Transmission Date: 20071010
  Serious: Yes (Hospitalization)
  Sender: FDA-Public Use
  Company Number: PHHO2007BE02055

PATIENT
  Age: 63 Year
  Sex: Male
  Weight: 73 kg

DRUGS (6)
  1. CYCLOSPORINE [Suspect]
     Indication: RENAL TRANSPLANT
     Dosage: NOT REPORTED
     Route: 048
     Dates: start: 20060928
  2. MEDROL [Concomitant]
  3. INSULIN [Concomitant]
  4. ACENOCOUMAROL [Concomitant]
  5. CYA + STEROID FREE VS RAD + ERL [Suspect]
     Indication: RENAL TRANSPLANT
     Dosage: 1440 MG / DAY
     Route: 048
     Dates: start: 20060928, end: 20061214
  6. CYA + STEROID FREE VS RAD + ERL [Suspect]
     Dosage: REDUCED DOSE
     Route: 048

REACTIONS (7)
  - BACILLUS INFECTION [None]
  - BRONCHIECTASIS [None]
  - FEBRILE NEUTROPENIA [None]
  - LEUKOPENIA [None]
  - LUNG DISORDER [None]
  - PSEUDOMONAS INFECTION [None]
  - STAPHYLOCOCCAL INFECTION [None]
